FAERS Safety Report 6500427-8 (Version None)
Quarter: 2009Q4

REPORT INFORMATION
  Report Type: 
  Country: None (occurrence: None)
  Receive Date: 20091216
  Receipt Date: 20091211
  Transmission Date: 20100525
  Serious: Yes (Death, Other)
  Sender: FDA-Public Use
  Company Number: PHEH2009US17711

PATIENT
  Sex: Male
  Weight: 62.132 kg

DRUGS (17)
  1. EXJADE [Suspect]
     Indication: IRON OVERLOAD
     Dosage: 1250 MG DAILY
     Route: 048
     Dates: start: 20070914, end: 20070924
  2. HYDROXYUREA [Suspect]
     Dosage: 500 MG, 5 TIMES A WEEK
  3. COUMADIN [Concomitant]
     Dosage: 6 MG, QD
  4. FOLIC ACID [Concomitant]
     Dosage: 1 MG, QD
  5. PROTONIX [Concomitant]
     Dosage: 40 MG, QD
  6. ALLEGRA [Concomitant]
     Dosage: 180 MG, QD
  7. FLOMAX [Concomitant]
     Dosage: 0.4 MG, QHS
  8. MEGESTROL ACETATE [Concomitant]
     Dosage: 200 MG, QD
  9. LASIX [Concomitant]
     Dosage: 20 MG, QOD
  10. POTASSIUM CHLORIDE [Concomitant]
     Dosage: 20 MEQ, QD
  11. COMBIVENT [Concomitant]
     Dosage: UNK, QID PRN
  12. OXYGEN THERAPY [Concomitant]
     Dosage: 2L/MINUTE
  13. MIACALCIN [Concomitant]
     Dosage: UNK
     Route: 045
  14. FORADIL [Concomitant]
     Dosage: 12 MCG BID
  15. ADVIL [Concomitant]
     Dosage: UNK
  16. PREDNISONE [Concomitant]
     Dosage: 20 MG, QD
  17. XENADERM [Concomitant]
     Dosage: UNK

REACTIONS (4)
  - ASTHENIA [None]
  - DIARRHOEA [None]
  - MALIGNANT NEOPLASM PROGRESSION [None]
  - URINE OUTPUT DECREASED [None]
